FAERS Safety Report 5488353-7 (Version None)
Quarter: 2007Q4

REPORT INFORMATION
  Report Type: 
  Country: None (occurrence: None)
  Receive Date: 20071017
  Receipt Date: 20071015
  Transmission Date: 20080405
  Serious: Yes (Hospitalization)
  Sender: FDA-Public Use
  Company Number: B0484734A

PATIENT
  Age: 60 Year
  Sex: Female
  Weight: 50 kg

DRUGS (5)
  1. ARIXTRA [Suspect]
     Indication: THROMBOSIS PROPHYLAXIS
     Dosage: 2.5MG PER DAY
     Route: 058
     Dates: start: 20070810, end: 20070813
  2. KINEDAK [Concomitant]
     Indication: DIABETES MELLITUS
     Dosage: 150MG PER DAY
     Route: 048
  3. JUVELA N [Concomitant]
     Dosage: 300MG PER DAY
     Route: 048
  4. PRAVASTATIN [Concomitant]
     Dosage: 5MG PER DAY
     Route: 048
  5. PROTECADIN [Concomitant]
     Dosage: 10MG PER DAY
     Route: 048

REACTIONS (5)
  - ANAEMIA [None]
  - DIZZINESS EXERTIONAL [None]
  - HIP SWELLING [None]
  - OEDEMA PERIPHERAL [None]
  - POST PROCEDURAL HAEMORRHAGE [None]
